FAERS Safety Report 6282821-6 (Version None)
Quarter: 2009Q3

REPORT INFORMATION
  Report Type: 
  Country: None (occurrence: None)
  Receive Date: 20090722
  Receipt Date: 20090722
  Transmission Date: 20100115
  Serious: No
  Sender: FDA-Public Use
  Company Number: None

PATIENT
  Age: 36 Year
  Sex: Male
  Weight: 62.1428 kg

DRUGS (1)
  1. ZOCOR [Suspect]
     Indication: LIPIDS
     Dosage: 10MG TABLET 1 DAILY PO
     Route: 048
     Dates: start: 20090705, end: 20090721

REACTIONS (3)
  - INCREASED UPPER AIRWAY SECRETION [None]
  - OROPHARYNGEAL PAIN [None]
  - THROAT IRRITATION [None]
